FAERS Safety Report 26183588 (Version 1)
Quarter: 2025Q4

REPORT INFORMATION
  Report Type: Spontaneous
  Country: US (occurrence: US)
  Receive Date: 20251221
  Receipt Date: 20251221
  Transmission Date: 20260118
  Serious: Yes (Hospitalization)
  Sender: TEVA
  Company Number: US-TEVA-VS-3403631

PATIENT
  Age: 67 Year
  Sex: Male

DRUGS (8)
  1. WARFARIN [Suspect]
     Active Substance: WARFARIN
     Indication: Anticoagulant therapy
     Route: 065
  2. CHOLECALCIFEROL [Concomitant]
     Active Substance: CHOLECALCIFEROL
     Indication: Chronic kidney disease
     Route: 065
  3. TORSEMIDE [Concomitant]
     Active Substance: TORSEMIDE
     Indication: Cardiac failure acute
     Route: 065
  4. ATORVASTATIN CALCIUM [Concomitant]
     Active Substance: ATORVASTATIN CALCIUM
     Indication: Ischaemic cardiomyopathy
     Route: 065
  5. FISH OIL [Concomitant]
     Active Substance: FISH OIL
     Indication: Product used for unknown indication
     Route: 065
  6. ASPIRIN [Concomitant]
     Active Substance: ASPIRIN
     Indication: Ischaemic cardiomyopathy
     Route: 065
  7. FENOFIBRATE [Concomitant]
     Active Substance: FENOFIBRATE
     Indication: Product used for unknown indication
     Route: 065
  8. METOPROLOL [Concomitant]
     Active Substance: METOPROLOL
     Indication: Atrial fibrillation
     Route: 065

REACTIONS (1)
  - Drug-induced liver injury [Recovering/Resolving]
